FAERS Safety Report 10808888 (Version 1)
Quarter: 2015Q1

REPORT INFORMATION
  Report Type: Report from Study
  Country: US (occurrence: US)
  Receive Date: 20150217
  Receipt Date: 20150217
  Transmission Date: 20150721
  Serious: No
  Sender: FDA-Public Use
  Company Number: US-ABBVIE-14K-163-1221034-00

PATIENT
  Age: 65 Year
  Sex: Female

DRUGS (4)
  1. BONAVERE [Concomitant]
     Indication: BONE DENSITY DECREASED
     Dosage: UNKNOWN MG
  2. HUMIRA [Suspect]
     Active Substance: ADALIMUMAB
     Indication: RHEUMATOID ARTHRITIS
     Dates: start: 20140128, end: 20140316
  3. HUMIRA [Suspect]
     Active Substance: ADALIMUMAB
     Dates: start: 20140331
  4. PANTOPRAZOLE [Concomitant]
     Active Substance: PANTOPRAZOLE SODIUM
     Indication: GASTROOESOPHAGEAL REFLUX DISEASE
     Dosage: EVERY DAY TO TWO IN ONE DAY

REACTIONS (3)
  - Oropharyngeal pain [Recovered/Resolved]
  - Sinusitis [Recovered/Resolved]
  - Throat irritation [Recovered/Resolved]

NARRATIVE: CASE EVENT DATE: 20140314
